FAERS Safety Report 4800194-X (Version None)
Quarter: 2005Q4

REPORT INFORMATION
  Report Type: 
  Country: None (occurrence: None)
  Receive Date: 20051013
  Receipt Date: 20051013
  Transmission Date: 20060501
  Serious: Yes (Life-Threatening)
  Sender: FDA-Public Use
  Company Number: None

PATIENT
  Age: 82 Year
  Sex: Female

DRUGS (7)
  1. SOTALOL [Suspect]
     Indication: HYPERTENSION
     Dosage: 160 O/D
  2. CATAPRES-TTS-2 [Suspect]
     Indication: ATRIAL FIBRILLATION
     Dosage: APPLY 1 Q WEEK
  3. PROTONIX [Concomitant]
  4. LEXAPRO [Concomitant]
  5. COUMADIN [Concomitant]
  6. ATIVAN [Concomitant]
  7. ZELNORM [Concomitant]

REACTIONS (5)
  - CARDIAC ARREST [None]
  - CEREBROVASCULAR ACCIDENT [None]
  - ELECTROCARDIOGRAM QT PROLONGED [None]
  - ELECTROCARDIOGRAM T WAVE INVERSION [None]
  - VENTRICULAR TACHYCARDIA [None]
